FAERS Safety Report 12938766 (Version 2)
Quarter: 2017Q1

REPORT INFORMATION
  Report Type: Spontaneous
  Country: US (occurrence: US)
  Receive Date: 20161115
  Receipt Date: 20170131
  Transmission Date: 20170428
  Serious: No
  Sender: FDA-Public Use
  Company Number: US-PFIZER INC-2016528005

PATIENT
  Age: 54 Year
  Sex: Female
  Weight: 70 kg

DRUGS (4)
  1. PREMARIN [Suspect]
     Active Substance: ESTROGENS, CONJUGATED
     Indication: MENOPAUSAL SYMPTOMS
     Dosage: 0.3 MG, 1X/DAY
     Route: 048
     Dates: start: 20161108
  2. PREMARIN [Suspect]
     Active Substance: ESTROGENS, CONJUGATED
     Dosage: 0.2 MG, UNK
     Route: 048
     Dates: start: 201612
  3. PROGESTERONE. [Suspect]
     Active Substance: PROGESTERONE
     Indication: MENOPAUSAL SYMPTOMS
     Dosage: 200 MG, 1X/DAY
     Route: 048
     Dates: start: 20161108
  4. PROGESTERONE. [Suspect]
     Active Substance: PROGESTERONE
     Dosage: 200 MG, UNK
     Route: 048
     Dates: start: 201612

REACTIONS (7)
  - Dysstasia [Recovered/Resolved]
  - Toxicity to various agents [Not Recovered/Not Resolved]
  - Impaired driving ability [Unknown]
  - Malaise [Not Recovered/Not Resolved]
  - Gait disturbance [Recovered/Resolved]
  - Feeling abnormal [Not Recovered/Not Resolved]
  - Feeling drunk [Not Recovered/Not Resolved]

NARRATIVE: CASE EVENT DATE: 20161108
